FAERS Safety Report 14027608 (Version 5)
Quarter: 2017Q4

REPORT INFORMATION
  Report Type: Spontaneous
  Country: US (occurrence: US)
  Receive Date: 20170929
  Receipt Date: 20171211
  Transmission Date: 20180321
  Serious: No
  Sender: FDA-Public Use
  Company Number: US-PFIZER INC-2017415511

PATIENT
  Age: 81 Year
  Sex: Female
  Weight: 63.49 kg

DRUGS (1)
  1. XELJANZ XR [Suspect]
     Active Substance: TOFACITINIB CITRATE
     Indication: RHEUMATOID ARTHRITIS
     Dosage: 11 MG, DAILY
     Route: 048
     Dates: start: 20170831, end: 20171204

REACTIONS (23)
  - Vulvovaginal pruritus [Unknown]
  - Erythema [Unknown]
  - Malaise [Unknown]
  - Sinus disorder [Unknown]
  - Lip swelling [Unknown]
  - Dyspnoea [Unknown]
  - Skin disorder [Unknown]
  - Wheezing [Not Recovered/Not Resolved]
  - Hypersensitivity [Unknown]
  - Nausea [Unknown]
  - Pruritus [Unknown]
  - Nasopharyngitis [Unknown]
  - Asthenia [Unknown]
  - Dizziness [Unknown]
  - Urticaria [Unknown]
  - Swollen tongue [Unknown]
  - Pyrexia [Unknown]
  - Back pain [Unknown]
  - Mouth swelling [Unknown]
  - Feeling abnormal [Unknown]
  - Myalgia [Unknown]
  - Condition aggravated [Unknown]
  - Anal pruritus [Unknown]

NARRATIVE: CASE EVENT DATE: 2017
